FAERS Safety Report 5442585-2 (Version None)
Quarter: 2007Q3

REPORT INFORMATION
  Report Type: 
  Country: None (occurrence: None)
  Receive Date: 20070904
  Receipt Date: 20070822
  Transmission Date: 20080115
  Serious: No
  Sender: FDA-Public Use
  Company Number: US-SHR-US-2007-024391

PATIENT
  Age: 29 Year
  Sex: Female
  Weight: 117.91 kg

DRUGS (3)
  1. BETASERON [Suspect]
     Route: 058
     Dates: start: 20060503, end: 20061123
  2. PROCARDIA XL [Concomitant]
     Dosage: 60 MG/D, UNK
     Route: 048
     Dates: start: 20070130
  3. PRENATAL [Concomitant]

REACTIONS (1)
  - DRUG EXPOSURE DURING PREGNANCY [None]
